FAERS Safety Report 7986279-8 (Version None)
Quarter: 2011Q4

REPORT INFORMATION
  Report Type: 
  Country: None (occurrence: None)
  Receive Date: 20111216
  Receipt Date: 20110124
  Transmission Date: 20120403
  Serious: No
  Sender: FDA-Public Use
  Company Number: US-BRISTOL-MYERS SQUIBB COMPANY-15506355

PATIENT
  Age: 37 Year
  Sex: Male

DRUGS (3)
  1. KLONOPIN [Concomitant]
  2. GABAPENTIN [Concomitant]
  3. ABILIFY [Suspect]
     Dosage: TOOK FOR 2 WEEKS AND STOPPED TAKING OVER THE WEEKEND, OFF FOR 3 DAYS.

REACTIONS (3)
  - RESTLESSNESS [None]
  - NERVOUSNESS [None]
  - ANXIETY [None]
